FAERS Safety Report 5297307-5 (Version None)
Quarter: 2007Q2

REPORT INFORMATION
  Report Type: 
  Country: None (occurrence: None)
  Receive Date: 20070410
  Receipt Date: 20070410
  Transmission Date: 20071010
  Serious: Yes (Hospitalization)
  Sender: FDA-Public Use
  Company Number: None

PATIENT
  Sex: Female
  Weight: 61.2356 kg

DRUGS (1)
  1. INTERFERON [Suspect]
     Indication: MALIGNANT MELANOMA
     Dosage: 17 MIU 3X WK SQ
     Route: 058
     Dates: start: 20061201, end: 20070123

REACTIONS (3)
  - BREAST PAIN [None]
  - MASTITIS [None]
  - SKIN ULCER [None]
